FAERS Safety Report 17334183 (Version 2)
Quarter: 2020Q1

REPORT INFORMATION
  Report Type: Report from Study
  Country: None (occurrence: US)
  Receive Date: 20200128
  Receipt Date: 20200226
  Transmission Date: 20200409
  Serious: Yes (Hospitalization, Other)
  Sender: FDA-Public Use
  Company Number: US-ABBVIE-20K-163-3251172-00

PATIENT
  Sex: Female
  Weight: 88.53 kg

DRUGS (2)
  1. HUMIRA [Suspect]
     Active Substance: ADALIMUMAB
     Route: 058
     Dates: start: 201904
  2. HUMIRA [Suspect]
     Active Substance: ADALIMUMAB
     Indication: PSORIATIC ARTHROPATHY
     Route: 058
     Dates: start: 2013

REACTIONS (7)
  - Intervertebral disc protrusion [Not Recovered/Not Resolved]
  - Drug ineffective [Recovering/Resolving]
  - Nerve root injury lumbar [Not Recovered/Not Resolved]
  - Peripheral swelling [Recovering/Resolving]
  - Spinal stenosis [Not Recovered/Not Resolved]
  - Back pain [Recovering/Resolving]
  - Muscle spasms [Recovering/Resolving]
